FAERS Safety Report 21629525 (Version 1)
Quarter: 2022Q4

REPORT INFORMATION
  Report Type: Other
  Country: KR (occurrence: KR)
  Receive Date: 20221122
  Receipt Date: 20221122
  Transmission Date: 20230112
  Serious: No
  Sender: FDA-Public Use
  Company Number: KR-NPI-000001

PATIENT
  Age: 35 Year
  Sex: Male

DRUGS (2)
  1. CALCIUM GLUCONATE [Suspect]
     Active Substance: CALCIUM GLUCONATE
     Indication: Cardiac arrest
     Route: 065
  2. CALCIUM GLUCONATE [Suspect]
     Active Substance: CALCIUM GLUCONATE
     Indication: Skin lesion
     Route: 065

REACTIONS (4)
  - Tachycardia [Unknown]
  - Death [Fatal]
  - Drug ineffective for unapproved indication [Unknown]
  - Off label use [Unknown]
